FAERS Safety Report 15250547 (Version 1)
Quarter: 2018Q4

REPORT INFORMATION
  Report Type: Spontaneous
  Country: ES (occurrence: ES)
  Receive Date: 20180807
  Receipt Date: 20180807
  Transmission Date: 20190204
  Serious: Yes (Hospitalization)
  Sender: FDA-Public Use
  Company Number: ES-SA-2018SA208680

PATIENT
  Sex: Female

DRUGS (7)
  1. LOW MOLECULAR WEIGHT HEPARIN SODIUM [Concomitant]
     Active Substance: HEPARIN SODIUM
     Indication: SURGERY
     Dosage: 60 UNK, Q12H
     Route: 065
     Dates: start: 20161027, end: 20170125
  2. FUROSEMIDE ACCORD [Concomitant]
     Active Substance: FUROSEMIDE
     Indication: CARDIAC FAILURE
     Route: 065
  3. CLEXANE [Suspect]
     Active Substance: ENOXAPARIN SODIUM
     Dosage: 60 MG, Q12H
     Route: 065
     Dates: start: 20161026, end: 20161117
  4. BISOPROLOL [Concomitant]
     Active Substance: BISOPROLOL
     Route: 065
  5. GABAPENTIN. [Concomitant]
     Active Substance: GABAPENTIN
     Indication: NEURALGIA
     Route: 065
  6. LEVOTHYROXINE. [Concomitant]
     Active Substance: LEVOTHYROXINE
     Indication: HYPOTHYROIDISM
     Route: 065
  7. ACENOCUMAROL GEN MED [Suspect]
     Active Substance: ACENOCOUMAROL
     Dosage: 11 MG, QW
     Route: 065
     Dates: start: 20160107

REACTIONS (2)
  - Hypovolaemic shock [Recovered/Resolved]
  - Retroperitoneal haematoma [Unknown]

NARRATIVE: CASE EVENT DATE: 20161116
